FAERS Safety Report 9999640 (Version 3)
Quarter: 2014Q2

REPORT INFORMATION
  Report Type: Report from Study
  Country: US (occurrence: US)
  Receive Date: 20140312
  Receipt Date: 20140416
  Transmission Date: 20141212
  Serious: Yes (Life-Threatening, Hospitalization)
  Sender: FDA-Public Use
  Company Number: US-BRISTOL-MYERS SQUIBB COMPANY-19530609

PATIENT
  Sex: Female

DRUGS (9)
  1. ARIPIPRAZOLE [Suspect]
     Indication: DEPRESSION
     Dosage: TABS?LAST DATE STUDY DRUG TAKEN: 12SEP13
     Route: 048
     Dates: start: 20130723, end: 20130912
  2. ASPIRIN [Concomitant]
     Dosage: ASPIRIN TAB CHEWABLE
     Route: 048
  3. CYANOCOBALAMIN [Concomitant]
     Dosage: TABS
     Route: 048
  4. CYCLOBENZAPRINE [Concomitant]
     Dosage: TABS
     Route: 048
  5. ENOXAPARIN [Concomitant]
     Dosage: 1 DF = INJ 4OMG/0.4ML
     Route: 058
  6. FLUOXETINE [Concomitant]
     Route: 048
  7. HYDROCODONE + ACETAMINOPHEN [Concomitant]
     Dosage: TABS.1 DF = 10/650MG
     Route: 048
  8. LEVOTHYROXINE [Concomitant]
     Dosage: TABS
     Route: 048
  9. NITROGLYCERIN TABS [Concomitant]
     Route: 060

REACTIONS (4)
  - Syncope [Recovered/Resolved]
  - Chest pain [Recovered/Resolved]
  - Anxiety [Recovered/Resolved]
  - Hyperventilation [Recovered/Resolved]
